FAERS Safety Report 9352969 (Version 1)
Quarter: 2013Q2

REPORT INFORMATION
  Report Type: Spontaneous
  Country: CN (occurrence: CN)
  Receive Date: 20130618
  Receipt Date: 20130618
  Transmission Date: 20140414
  Serious: Yes (Hospitalization)
  Sender: FDA-Public Use
  Company Number: CN-JNJFOC-20130606396

PATIENT
  Age: 24 Year
  Sex: Female

DRUGS (5)
  1. TYLENOL COLD [Suspect]
     Indication: PYREXIA
     Route: 048
     Dates: start: 20120803, end: 20120803
  2. ANALGIN [Concomitant]
     Indication: PYREXIA
     Route: 065
     Dates: start: 20120803
  3. AMOXICILLINE [Concomitant]
     Indication: PYREXIA
     Route: 065
     Dates: start: 20120803
  4. CHINESE MEDICATION [Concomitant]
     Indication: PYREXIA
     Route: 065
     Dates: start: 20120803
  5. CEPHRADINE [Concomitant]
     Indication: PYREXIA
     Route: 065
     Dates: start: 20120803

REACTIONS (18)
  - Rash pruritic [Recovering/Resolving]
  - Pyrexia [Unknown]
  - Diarrhoea [Unknown]
  - Eyelid oedema [Unknown]
  - Swelling face [Unknown]
  - Local swelling [Unknown]
  - Purpura [Unknown]
  - Tenderness [None]
  - Haemoglobin increased [None]
  - White blood cell count increased [None]
  - Platelet count decreased [None]
  - Neutrophil percentage increased [None]
  - Rash macular [None]
  - Blood creatinine increased [None]
  - Blood urea increased [None]
  - Blood uric acid increased [None]
  - Blood sodium decreased [None]
  - Rash generalised [None]
